FAERS Safety Report 13817466 (Version 1)
Quarter: 2017Q3

REPORT INFORMATION
  Report Type: Spontaneous
  Country: US (occurrence: US)
  Receive Date: 20170731
  Receipt Date: 20170731
  Transmission Date: 20171127
  Serious: Yes (Other)
  Sender: FDA-Public Use
  Company Number: US-BIOMARINAP-US-2017-114845

PATIENT
  Age: 13 Year
  Sex: Male
  Weight: 52.61 kg

DRUGS (1)
  1. ALDURAZYME [Suspect]
     Active Substance: LARONIDASE
     Indication: MUCOPOLYSACCHARIDOSIS
     Dosage: 0.71 MG/KG, QW
     Route: 041
     Dates: start: 20150609

REACTIONS (2)
  - Pyrexia [Unknown]
  - Rash generalised [Unknown]

NARRATIVE: CASE EVENT DATE: 20170714
